FAERS Safety Report 16164334 (Version 1)
Quarter: 2019Q2

REPORT INFORMATION
  Report Type: Spontaneous
  Country: US (occurrence: US)
  Receive Date: 20190405
  Receipt Date: 20190405
  Transmission Date: 20190711
  Serious: Yes (Other)
  Sender: FDA-Public Use
  Company Number: US-VERICEL CORPORATION-VCEL-2019-000024

PATIENT
  Sex: Male

DRUGS (2)
  1. MACI [Suspect]
     Active Substance: AUTOLOGOUS CULTURED CHONDROCYTES\SUS SCROFA COLLAGEN
     Dosage: UNK
  2. MACI [Suspect]
     Active Substance: AUTOLOGOUS CULTURED CHONDROCYTES\SUS SCROFA COLLAGEN
     Indication: CARTILAGE INJURY
     Dosage: UNK
     Dates: start: 20171120

REACTIONS (2)
  - Graft delamination [Recovering/Resolving]
  - Graft overgrowth [Recovering/Resolving]
